FAERS Safety Report 6700349-3 (Version None)
Quarter: 2010Q2

REPORT INFORMATION
  Report Type: 
  Country: None (occurrence: None)
  Receive Date: 20100428
  Receipt Date: 20100413
  Transmission Date: 20101027
  Serious: No
  Sender: FDA-Public Use
  Company Number: US-B.I. PHARMACEUTICALS,INC./RIDGEFIELD-2010-BP-04285BP

PATIENT
  Sex: Male

DRUGS (1)
  1. MIRAPEX [Suspect]
     Indication: NEUROPATHY PERIPHERAL
     Dosage: 0.75 MG
     Route: 048
     Dates: start: 20081201, end: 20100406

REACTIONS (5)
  - FEELING OF BODY TEMPERATURE CHANGE [None]
  - HYPERHIDROSIS [None]
  - INSOMNIA [None]
  - PAIN [None]
  - TREMOR [None]
